FAERS Safety Report 5319186-X (Version None)
Quarter: 2007Q2

REPORT INFORMATION
  Report Type: 
  Country: None (occurrence: None)
  Receive Date: 20070508
  Receipt Date: 20070430
  Transmission Date: 20071010
  Serious: Yes (Death)
  Sender: FDA-Public Use
  Company Number: US-ASTRAZENECA-2006UW21670

PATIENT
  Sex: Female

DRUGS (2)
  1. SEROQUEL [Suspect]
     Indication: PARANOIA
     Dosage: 200-300 MG
     Route: 048
     Dates: start: 20020514, end: 20060110
  2. SEROQUEL [Suspect]
     Indication: INSOMNIA
     Dosage: 200-300 MG
     Route: 048
     Dates: start: 20020514, end: 20060110

REACTIONS (2)
  - DEATH [None]
  - DIABETES MELLITUS [None]
